FAERS Safety Report 9206912 (Version 2)
Quarter: 2013Q4

REPORT INFORMATION
  Report Type: Spontaneous
  Country: US (occurrence: US)
  Receive Date: 20130403
  Receipt Date: 20131107
  Transmission Date: 20140711
  Serious: Yes (Hospitalization, Disabling)
  Sender: FDA-Public Use
  Company Number: US-BAYER-2013-039259

PATIENT
  Age: 24 Year
  Sex: Female

DRUGS (3)
  1. YAZ [Suspect]
  2. YASMIN [Suspect]
  3. OCELLA [Suspect]

REACTIONS (8)
  - Gallbladder disorder [None]
  - Cholelithiasis [None]
  - Cholecystitis infective [None]
  - Injury [None]
  - Pain [None]
  - Anhedonia [None]
  - Anxiety [None]
  - Deformity [None]
